FAERS Safety Report 10932090 (Version 1)
Quarter: 2015Q1

REPORT INFORMATION
  Report Type: Spontaneous
  Country: US (occurrence: None)
  Receive Date: 20150129
  Receipt Date: 20150129
  Transmission Date: 20150721
  Serious: No
  Sender: FDA-Public Use
  Company Number: A-US2014-104931

PATIENT
  Age: 29 Year
  Sex: Female

DRUGS (1)
  1. OPSUMIT [Suspect]
     Active Substance: MACITENTAN
     Indication: PULMONARY ARTERIAL HYPERTENSION
     Route: 048
     Dates: start: 20140103

REACTIONS (9)
  - Lyme disease [None]
  - Dyspnoea exertional [None]
  - Malaise [None]
  - Dyspnoea [None]
  - Condition aggravated [None]
  - Rash [None]
  - Headache [None]
  - Cognitive disorder [None]
  - Fatigue [None]

NARRATIVE: CASE EVENT DATE: 201408
